FAERS Safety Report 12756952 (Version 3)
Quarter: 2016Q4

REPORT INFORMATION
  Report Type: Spontaneous
  Country: NL (occurrence: NL)
  Receive Date: 20160917
  Receipt Date: 20161007
  Transmission Date: 20170207
  Serious: Yes (Life-Threatening, Hospitalization)
  Sender: FDA-Public Use
  Company Number: PHHY2016NL126313

PATIENT
  Age: 57 Year
  Sex: Male

DRUGS (2)
  1. PIROXICAM. [Concomitant]
     Active Substance: PIROXICAM
     Indication: PRODUCT USED FOR UNKNOWN INDICATION
     Dosage: 10 MG, BID
     Route: 065
     Dates: start: 20160317
  2. COSENTYX [Suspect]
     Active Substance: SECUKINUMAB
     Indication: ANKYLOSING SPONDYLITIS
     Dosage: 1 DF, PEN 1 ML, QW AFTER THE FIRST 4 WEEKS ONCE PER MONTH
     Route: 065
     Dates: start: 20160613, end: 20160704

REACTIONS (2)
  - Pneumonia streptococcal [Recovering/Resolving]
  - Infectious pleural effusion [Recovering/Resolving]

NARRATIVE: CASE EVENT DATE: 20160731
